FAERS Safety Report 8923743 (Version 1)
Quarter: 2012Q4

REPORT INFORMATION
  Report Type: 
  Country: NZ (occurrence: NZ)
  Receive Date: 20121126
  Receipt Date: 20121126
  Transmission Date: 20130627
  Serious: Yes (Other)
  Sender: FDA-Public Use
  Company Number: NZ-JNJFOC-20121109959

PATIENT
  Age: 3 Year
  Sex: Male

DRUGS (4)
  1. PARACETAMOL [Suspect]
     Indication: HAEMATEMESIS
     Dosage: 250 mg/5 mL syrup, 10 mL every 4 hours for 3 to 4 days
     Route: 048
  2. PARACETAMOL [Suspect]
     Indication: DIARRHOEA
     Dosage: 250 mg/5 mL syrup, 10 mL every 4 hours for 3 to 4 days
     Route: 048
  3. PARACETAMOL [Suspect]
     Indication: INFLUENZA LIKE ILLNESS
     Dosage: 250 mg/5 mL syrup, 10 mL every 4 hours for 3 to 4 days
     Route: 048
  4. ORAL REHYDRATION SALT FORMULATIONS [Concomitant]

REACTIONS (11)
  - Renal failure acute [Unknown]
  - Accidental overdose [Unknown]
  - Jaundice [Unknown]
  - Aspartate aminotransferase increased [Unknown]
  - Alanine aminotransferase increased [Unknown]
  - International normalised ratio increased [Unknown]
  - Analgesic drug level increased [Unknown]
  - Irritability [Unknown]
  - Vomiting [Unknown]
  - Diarrhoea [Unknown]
  - Altered state of consciousness [Unknown]
